FAERS Safety Report 7603052-0 (Version None)
Quarter: 2011Q3

REPORT INFORMATION
  Report Type: 
  Country: None (occurrence: None)
  Receive Date: 20110712
  Receipt Date: 20110712
  Transmission Date: 20111222
  Serious: No
  Sender: FDA-Public Use
  Company Number: None

PATIENT
  Age: 43 Year
  Sex: Male
  Weight: 138.34 kg

DRUGS (5)
  1. IBUPROFEN [Interacting]
  2. CETIRIZINE [Suspect]
     Indication: HYPERSENSITIVITY
     Dosage: 10 MG
     Route: 048
     Dates: start: 20090315, end: 20110707
  3. NASALCROM [Interacting]
  4. RHINOCORT [Interacting]
  5. ACIPHEX [Interacting]

REACTIONS (2)
  - HAEMORRHAGE [None]
  - PRURITUS [None]
